FAERS Safety Report 7821697-X (Version None)
Quarter: 2011Q4

REPORT INFORMATION
  Report Type: 
  Country: None (occurrence: None)
  Receive Date: 20111018
  Receipt Date: 20101108
  Transmission Date: 20120403
  Serious: No
  Sender: FDA-Public Use
  Company Number: US-ASTRAZENECA-2010SE53625

PATIENT
  Age: 25290 Day
  Sex: Female

DRUGS (1)
  1. SYMBICORT [Suspect]
     Route: 055

REACTIONS (4)
  - DYSURIA [None]
  - PYREXIA [None]
  - MALAISE [None]
  - URINARY TRACT INFECTION [None]
